FAERS Safety Report 21555113 (Version 1)
Quarter: 2022Q4

REPORT INFORMATION
  Report Type: Other
  Country: None (occurrence: CN)
  Receive Date: 20221104
  Receipt Date: 20221104
  Transmission Date: 20230112
  Serious: Yes (Other)
  Sender: FDA-Public Use
  Company Number: CN-YoungTech Pharmaceuticals, Inc.-2134511

PATIENT
  Age: 7 Year
  Sex: Male

DRUGS (1)
  1. METOPROLOL TARTRATE [Suspect]
     Active Substance: METOPROLOL TARTRATE
     Indication: Ventricular tachycardia
     Route: 065

REACTIONS (3)
  - Bradycardia [Unknown]
  - Fatigue [Unknown]
  - Peripheral coldness [Unknown]
